FAERS Safety Report 22639957 (Version 1)
Quarter: 2023Q2

REPORT INFORMATION
  Report Type: Spontaneous
  Country: US (occurrence: None)
  Receive Date: 20230622
  Receipt Date: 20230622
  Transmission Date: 20230721
  Serious: No
  Sender: FDA-Public Use
  Company Number: None

PATIENT

DRUGS (8)
  1. ELIQUIS [Suspect]
     Active Substance: APIXABAN
  2. AMIODARONE [Suspect]
     Active Substance: AMIODARONE
  3. ATORVASTATIN [Concomitant]
     Active Substance: ATORVASTATIN
  4. LASIX [Concomitant]
     Active Substance: FUROSEMIDE
  5. SERTRALINE [Concomitant]
     Active Substance: SERTRALINE HYDROCHLORIDE
  6. Pantopraazole [Concomitant]
  7. PROBIOTICS NOS [Concomitant]
     Active Substance: PROBIOTICS NOS
  8. ROGAINE [Concomitant]
     Active Substance: MINOXIDIL

REACTIONS (3)
  - Loss of consciousness [None]
  - Dizziness [None]
  - Deafness unilateral [None]

NARRATIVE: CASE EVENT DATE: 20230228
